FAERS Safety Report 7133499-0 (Version None)
Quarter: 2010Q4

REPORT INFORMATION
  Report Type: 
  Country: None (occurrence: None)
  Receive Date: 20101202
  Receipt Date: 20101129
  Transmission Date: 20110411
  Serious: Yes (Other)
  Sender: FDA-Public Use
  Company Number: BR-PFIZER INC-2010159502

PATIENT
  Age: 33 Year
  Sex: Female
  Weight: 75 kg

DRUGS (2)
  1. FRONTAL [Suspect]
     Indication: PROPHYLAXIS
     Dosage: 0.25 MG, UNK
     Route: 048
     Dates: start: 20101127
  2. FRONTAL [Suspect]
     Indication: SLEEP DISORDER

REACTIONS (2)
  - CHEST DISCOMFORT [None]
  - HEART RATE INCREASED [None]
